FAERS Safety Report 19095341 (Version 1)
Quarter: 2021Q2

REPORT INFORMATION
  Report Type: Spontaneous
  Country: CA (occurrence: CA)
  Receive Date: 20210406
  Receipt Date: 20210406
  Transmission Date: 20210717
  Serious: Yes (Other)
  Sender: FDA-Public Use
  Company Number: CA-SA-2021SA108731

PATIENT
  Sex: Female

DRUGS (37)
  1. ALPRAZOLAM. [Suspect]
     Active Substance: ALPRAZOLAM
  2. AMOXICILLIN TRIHYDRATE [Suspect]
     Active Substance: AMOXICILLIN
  3. BETAMETHASONE DIPROPIONATE. [Suspect]
     Active Substance: BETAMETHASONE DIPROPIONATE
  4. CLARITHROMYCIN. [Suspect]
     Active Substance: CLARITHROMYCIN
  5. DESONIDE. [Suspect]
     Active Substance: DESONIDE
  6. ERGOCALCIFEROL. [Suspect]
     Active Substance: ERGOCALCIFEROL
  7. NADOLOL. [Suspect]
     Active Substance: NADOLOL
  8. NICOTINE POLACRILEX [Suspect]
     Active Substance: NICOTINE
     Dosage: PATCH
  9. AVAMYS [Suspect]
     Active Substance: FLUTICASONE FUROATE
  10. CETIRIZINE HYDROCHLORIDE. [Suspect]
     Active Substance: CETIRIZINE HYDROCHLORIDE
  11. DIPHENHYDRAMINE. [Suspect]
     Active Substance: DIPHENHYDRAMINE
  12. PREGABALIN. [Suspect]
     Active Substance: PREGABALIN
  13. SULFAMETHOXAZOLE/TRIMETHOPRIM [Suspect]
     Active Substance: SULFAMETHOXAZOLE\TRIMETHOPRIM
  14. HUMIRA [Suspect]
     Active Substance: ADALIMUMAB
  15. VITAMIN D3 [Suspect]
     Active Substance: CHOLECALCIFEROL
  16. ATORVASTATIN CALCIUM. [Suspect]
     Active Substance: ATORVASTATIN CALCIUM
  17. MORPHINE SULFATE. [Suspect]
     Active Substance: MORPHINE SULFATE
  18. PREDNISONE. [Suspect]
     Active Substance: PREDNISONE
  19. HYDROCHLOROTHIAZIDE. [Suspect]
     Active Substance: HYDROCHLOROTHIAZIDE
  20. REFRESH TEARS [Suspect]
     Active Substance: CARBOXYMETHYLCELLULOSE SODIUM
     Route: 047
  21. TRIAMCINOLONE ACETONIDE. [Suspect]
     Active Substance: TRIAMCINOLONE ACETONIDE
  22. PARACETAMOL [Suspect]
     Active Substance: ACETAMINOPHEN
  23. BETAMETHASONE VALERATE. [Suspect]
     Active Substance: BETAMETHASONE VALERATE
  24. BIAXIN [Suspect]
     Active Substance: CLARITHROMYCIN
  25. BUDESONIDE. [Suspect]
     Active Substance: BUDESONIDE
  26. MUPIROCIN. [Suspect]
     Active Substance: MUPIROCIN
     Route: 061
  27. VALSARTAN. [Concomitant]
     Active Substance: VALSARTAN
  28. MESALAZINE [Suspect]
     Active Substance: MESALAMINE
     Indication: PRODUCT USED FOR UNKNOWN INDICATION
     Dosage: UNKN
  29. BISACODYL. [Suspect]
     Active Substance: BISACODYL
  30. ERTAPENEM SODIUM [Suspect]
     Active Substance: ERTAPENEM SODIUM
  31. CALCIUM CARBONATE;COLECALCIFEROL;ZINC [Suspect]
     Active Substance: CALCIUM CARBONATE\CHOLECALCIFEROL\ZINC
  32. PMS AZITHROMYCIN [Suspect]
     Active Substance: AZITHROMYCIN ANHYDROUS
  33. METRONIDAZOLE. [Suspect]
     Active Substance: METRONIDAZOLE
     Indication: PRODUCT USED FOR UNKNOWN INDICATION
     Dosage: UNKN
  34. PENTASA [Suspect]
     Active Substance: MESALAMINE
  35. PULMICORT TURBUHALER [Suspect]
     Active Substance: BUDESONIDE
     Route: 055
  36. FLOVENT [Suspect]
     Active Substance: FLUTICASONE PROPIONATE
  37. CLOTRIMAZOLE. [Suspect]
     Active Substance: CLOTRIMAZOLE

REACTIONS (2)
  - Macular degeneration [Unknown]
  - Drug ineffective [Unknown]
